FAERS Safety Report 13794151 (Version 1)
Quarter: 2017Q3

REPORT INFORMATION
  Report Type: Spontaneous
  Country: AR (occurrence: AR)
  Receive Date: 20170726
  Receipt Date: 20170726
  Transmission Date: 20171127
  Serious: Yes (Other)
  Sender: FDA-Public Use
  Company Number: AR-PFIZER INC-2017323936

PATIENT
  Age: 76 Year
  Sex: Female

DRUGS (1)
  1. XELJANZ [Suspect]
     Active Substance: TOFACITINIB CITRATE
     Indication: RHEUMATOID ARTHRITIS
     Dosage: 5 MG, 2X/DAY
     Dates: start: 20160425

REACTIONS (5)
  - Blood pressure abnormal [Recovering/Resolving]
  - Back pain [Unknown]
  - Memory impairment [Recovering/Resolving]
  - Neoplasm malignant [Not Recovered/Not Resolved]
  - Heart alternation [Recovering/Resolving]

NARRATIVE: CASE EVENT DATE: 20170110
